FAERS Safety Report 15934085 (Version 2)
Quarter: 2019Q1

REPORT INFORMATION
  Report Type: Spontaneous
  Country: US (occurrence: US)
  Receive Date: 20190207
  Receipt Date: 20190218
  Transmission Date: 20190417
  Serious: Yes (Other)
  Sender: FDA-Public Use
  Company Number: US-ASTRAZENECA-2019SE21281

PATIENT
  Age: 14781 Day
  Sex: Male

DRUGS (26)
  1. PROTONIX [Suspect]
     Active Substance: PANTOPRAZOLE SODIUM
     Route: 065
     Dates: start: 201209, end: 201709
  2. METOPROLOL. [Concomitant]
     Active Substance: METOPROLOL
     Dates: start: 20170925
  3. SENSIPAR [Concomitant]
     Active Substance: CINACALCET HYDROCHLORIDE
     Dates: start: 20170925
  4. ERGOCALCIFEROL. [Concomitant]
     Active Substance: ERGOCALCIFEROL
  5. ZOFRAN [Concomitant]
     Active Substance: ONDANSETRON HYDROCHLORIDE
  6. NIACIN. [Concomitant]
     Active Substance: NIACIN
     Dates: start: 20170925
  7. ATORVASTATIN [Concomitant]
     Active Substance: ATORVASTATIN
     Dates: start: 20170925
  8. NEXIUM [Suspect]
     Active Substance: ESOMEPRAZOLE MAGNESIUM
     Route: 048
     Dates: start: 20120905
  9. NEXIUM 24HR [Suspect]
     Active Substance: ESOMEPRAZOLE MAGNESIUM
     Route: 048
     Dates: start: 201209, end: 201709
  10. BICITRA [Concomitant]
     Active Substance: CITRIC ACID, 1-STEARYL ESTER\SODIUM CITRATE
  11. CALCIUM ACETATE. [Concomitant]
     Active Substance: CALCIUM ACETATE
     Dates: start: 20171003
  12. EPOETIN ALFA [Concomitant]
     Active Substance: ERYTHROPOIETIN
  13. ENALAPRIL [Concomitant]
     Active Substance: ENALAPRIL
  14. INSULIN DETEMIR [Concomitant]
     Active Substance: INSULIN DETEMIR
  15. RANITIDINE. [Concomitant]
     Active Substance: RANITIDINE
     Dates: start: 20170925
  16. NEXIUM [Suspect]
     Active Substance: ESOMEPRAZOLE MAGNESIUM
     Route: 048
     Dates: start: 201209, end: 201709
  17. GEMFIBROZIL. [Concomitant]
     Active Substance: GEMFIBROZIL
  18. NOVOLOG [Concomitant]
     Active Substance: INSULIN ASPART
     Dates: start: 20170925
  19. ULORIC [Concomitant]
     Active Substance: FEBUXOSTAT
     Dates: start: 20170925
  20. LISINOPRIL. [Concomitant]
     Active Substance: LISINOPRIL
     Dates: start: 20161108
  21. PRILOSEC OTC [Suspect]
     Active Substance: OMEPRAZOLE MAGNESIUM
     Route: 048
     Dates: start: 201209, end: 201709
  22. SIMVASTATIN. [Concomitant]
     Active Substance: SIMVASTATIN
  23. GABAPENTIN. [Concomitant]
     Active Substance: GABAPENTIN
     Dates: start: 20170926
  24. AMLODIPINE [Concomitant]
     Active Substance: AMLODIPINE BESYLATE
     Dates: start: 20170925
  25. LASIX [Concomitant]
     Active Substance: FUROSEMIDE
     Dates: start: 20170926
  26. AMBIEN [Concomitant]
     Active Substance: ZOLPIDEM TARTRATE

REACTIONS (6)
  - Nephrogenic anaemia [Unknown]
  - Acute kidney injury [Unknown]
  - Renal failure [Unknown]
  - Chronic kidney disease-mineral and bone disorder [Unknown]
  - Chronic kidney disease [Unknown]
  - End stage renal disease [Unknown]

NARRATIVE: CASE EVENT DATE: 20101208
